FAERS Safety Report 19624274 (Version 1)
Quarter: 2021Q3

REPORT INFORMATION
  Report Type: Spontaneous
  Country: FR (occurrence: FR)
  Receive Date: 20210728
  Receipt Date: 20210728
  Transmission Date: 20211014
  Serious: Yes (Hospitalization, Other)
  Sender: FDA-Public Use
  Company Number: FR-LUNDBECK-DKLU3036084

PATIENT
  Sex: Female

DRUGS (19)
  1. DEPAKINE [Suspect]
     Active Substance: VALPROATE SODIUM
     Dosage: 3 DF, QD
     Route: 065
     Dates: start: 19810512
  2. DEPAKINE [Suspect]
     Active Substance: VALPROATE SODIUM
     Dosage: 2 DF, QD
     Route: 065
  3. DEPAKINE [Suspect]
     Active Substance: VALPROATE SODIUM
     Dosage: 4 DF, QD (800 MG)
     Route: 065
     Dates: start: 19830428
  4. DEPAKINE [Suspect]
     Active Substance: VALPROATE SODIUM
     Dosage: 3 DF, QD
     Route: 065
  5. DEPAKINE CHRONO [Suspect]
     Active Substance: VALPROATE SODIUM
     Dosage: 4 DF, QD
     Route: 065
     Dates: start: 200909
  6. GARDENAL [Suspect]
     Active Substance: PHENOBARBITAL
     Dosage: 1 DF, QD
     Route: 065
     Dates: start: 19810512
  7. GARDENAL [Suspect]
     Active Substance: PHENOBARBITAL
     Dosage: 1 DF
     Route: 065
     Dates: start: 201312
  8. URBANYL [Suspect]
     Active Substance: CLOBAZAM
     Indication: EPILEPSY
     Dosage: UNK
     Route: 065
  9. GARDENAL [Suspect]
     Active Substance: PHENOBARBITAL
     Dosage: UNK
     Route: 065
     Dates: start: 1995
  10. VIMPAT [Concomitant]
     Active Substance: LACOSAMIDE
     Indication: PRODUCT USED FOR UNKNOWN INDICATION
     Dosage: UNK
     Route: 065
     Dates: start: 201111
  11. GARDENAL [Suspect]
     Active Substance: PHENOBARBITAL
     Indication: EPILEPSY
     Dosage: 10 CG, QD
     Route: 065
     Dates: start: 197702
  12. SABRIL [Suspect]
     Active Substance: VIGABATRIN
     Indication: EPILEPSY
     Dosage: UNK
     Route: 065
  13. DEPAKINE [Suspect]
     Active Substance: VALPROATE SODIUM
     Dosage: 2 DF, QD
     Route: 065
     Dates: start: 198712
  14. DEPAKINE CHRONO [Suspect]
     Active Substance: VALPROATE SODIUM
     Indication: EPILEPSY
     Dosage: 2 DF, BID
     Route: 065
     Dates: start: 20050130
  15. DEPAKINE CHRONO [Suspect]
     Active Substance: VALPROATE SODIUM
     Dosage: 4 DF, QD
     Route: 065
     Dates: start: 201312
  16. GARDENAL [Suspect]
     Active Substance: PHENOBARBITAL
     Dosage: 50 MG
     Route: 065
     Dates: start: 20050130
  17. DEPAKINE [Suspect]
     Active Substance: VALPROATE SODIUM
     Indication: EPILEPSY
     Dosage: 40 MG, QD
     Route: 065
     Dates: start: 197702
  18. LEVETIRACETAM. [Suspect]
     Active Substance: LEVETIRACETAM
     Indication: EPILEPSY
     Dosage: 2 DF, QD
     Route: 065
     Dates: end: 2017
  19. VALIUM [Concomitant]
     Active Substance: DIAZEPAM
     Indication: PRODUCT USED FOR UNKNOWN INDICATION
     Dosage: 1 DF, QD
     Route: 065

REACTIONS (3)
  - Visual impairment [Unknown]
  - Maternal exposure during pregnancy [Unknown]
  - Epilepsy [Unknown]

NARRATIVE: CASE EVENT DATE: 200004
